FAERS Safety Report 5746052-8 (Version None)
Quarter: 2008Q2

REPORT INFORMATION
  Report Type: 
  Country: None (occurrence: None)
  Receive Date: 20080522
  Receipt Date: 20080516
  Transmission Date: 20081010
  Serious: Yes (Hospitalization)
  Sender: FDA-Public Use
  Company Number: BR-JNJFOC-20080504215

PATIENT
  Age: 68 Year
  Sex: Female
  Weight: 52 kg

DRUGS (4)
  1. HALDOL [Suspect]
     Indication: PARKINSON'S DISEASE
     Route: 048
  2. HALDOL [Suspect]
     Indication: MENTAL DISORDER
     Route: 048
  3. AKINETON [Concomitant]
     Indication: PARKINSON'S DISEASE
  4. NEOZINE [Concomitant]
     Indication: PARKINSON'S DISEASE

REACTIONS (6)
  - ABNORMAL BEHAVIOUR [None]
  - DRUG INEFFECTIVE [None]
  - NERVOUSNESS [None]
  - SELF INJURIOUS BEHAVIOUR [None]
  - SOMNOLENCE [None]
  - TREMOR [None]
